FAERS Safety Report 8270884-8 (Version None)
Quarter: 2012Q2

REPORT INFORMATION
  Report Type: 
  Country: None (occurrence: None)
  Receive Date: 20120410
  Receipt Date: 20120410
  Transmission Date: 20120825
  Serious: Yes (Life-Threatening)
  Sender: FDA-Public Use
  Company Number: None

PATIENT
  Age: 54 Year
  Sex: Female
  Weight: 81.646 kg

DRUGS (2)
  1. CYMBALTA [Suspect]
     Indication: FIBROMYALGIA
     Dosage: ONE CAPSULE
     Route: 048
     Dates: start: 20101001, end: 20120201
  2. CYMBALTA [Suspect]
     Indication: PANIC ATTACK
     Dosage: ONE CAPSULE
     Route: 048
     Dates: start: 20101001, end: 20120201

REACTIONS (34)
  - IRRITABILITY [None]
  - COORDINATION ABNORMAL [None]
  - DISORIENTATION [None]
  - CONFUSIONAL STATE [None]
  - MIGRAINE [None]
  - VERTIGO [None]
  - DRUG INEFFECTIVE [None]
  - DEPRESSED MOOD [None]
  - ANGER [None]
  - HYPOAESTHESIA [None]
  - DIZZINESS [None]
  - INSOMNIA [None]
  - TINNITUS [None]
  - ABDOMINAL DISCOMFORT [None]
  - PAIN [None]
  - DRUG WITHDRAWAL SYNDROME [None]
  - MOOD ALTERED [None]
  - DEPRESSION [None]
  - SUICIDAL IDEATION [None]
  - CONSTIPATION [None]
  - ABNORMAL DREAMS [None]
  - NERVOUSNESS [None]
  - ABDOMINAL PAIN UPPER [None]
  - CHILLS [None]
  - ANXIETY [None]
  - AGITATION [None]
  - DISTURBANCE IN ATTENTION [None]
  - VISION BLURRED [None]
  - DRY MOUTH [None]
  - PARAESTHESIA [None]
  - NAUSEA [None]
  - TREMOR [None]
  - CRYING [None]
  - HYPERHIDROSIS [None]
